FAERS Safety Report 7563046-0 (Version None)
Quarter: 2011Q2

REPORT INFORMATION
  Report Type: 
  Country: None (occurrence: None)
  Receive Date: 20110621
  Receipt Date: 20110621
  Transmission Date: 20111010
  Serious: Yes (Hospitalization)
  Sender: FDA-Public Use
  Company Number: None

PATIENT
  Sex: Female
  Weight: 78 kg

DRUGS (2)
  1. TAXOL [Suspect]
     Dosage: 325MG
  2. CARBOPLATIN [Suspect]
     Dosage: 400MG

REACTIONS (3)
  - DIARRHOEA [None]
  - COMPUTERISED TOMOGRAM ABDOMEN ABNORMAL [None]
  - PYREXIA [None]
